FAERS Safety Report 25680815 (Version 3)
Quarter: 2025Q3

REPORT INFORMATION
  Report Type: Spontaneous
  Country: JP (occurrence: JP)
  Receive Date: 20250814
  Receipt Date: 20250911
  Transmission Date: 20251020
  Serious: Yes (Hospitalization, Other)
  Sender: AMGEN
  Company Number: JP-KYOWAKIRIN-2025KK015407

PATIENT
  Sex: Female

DRUGS (1)
  1. DARBEPOETIN ALFA [Suspect]
     Active Substance: DARBEPOETIN ALFA
     Indication: Nephrogenic anaemia
     Dosage: 60 UG, 1X/4 WEEKS,ALFA 60MICROGRAMS ^KKF^ WAS SWITCHED TO DUVROQ BY THE PHYSICIAN.REASON FOR SWITCHI
     Route: 058

REACTIONS (2)
  - Hospitalisation [Unknown]
  - Disseminated intravascular coagulation [Unknown]
